FAERS Safety Report 8103110-0 (Version None)
Quarter: 2012Q1

REPORT INFORMATION
  Report Type: 
  Country: None (occurrence: None)
  Receive Date: 20120127
  Receipt Date: 20090316
  Transmission Date: 20120608
  Serious: Yes (Other)
  Sender: FDA-Public Use
  Company Number: 225584

PATIENT
  Sex: Female
  Weight: 81 kg

DRUGS (4)
  1. PACLITAXEL [Suspect]
     Indication: BREAST CANCER
     Dosage: 330 MG MILLIGRAM(S), UNKNOWN, INTRAVENOUS
     Route: 042
     Dates: start: 20090206
  2. (SERETIDE /01420901/) [Concomitant]
  3. PACLITAXEL [Suspect]
     Indication: BREAST CANCER
     Dosage: 330 MG MILLIGRAM(S) UNKNOWN, INTRAVENOUS
     Route: 042
     Dates: start: 20090206
  4. VENTOLIN [Concomitant]

REACTIONS (5)
  - PAIN IN EXTREMITY [None]
  - HYPERSENSITIVITY [None]
  - INFUSION RELATED REACTION [None]
  - BACK PAIN [None]
  - FLUSHING [None]
